FAERS Safety Report 5712075-8 (Version None)
Quarter: 2008Q2

REPORT INFORMATION
  Report Type: 
  Country: None (occurrence: None)
  Receive Date: 20080418
  Receipt Date: 20080408
  Transmission Date: 20081010
  Serious: No
  Sender: FDA-Public Use
  Company Number: TPA2008A00466

PATIENT
  Age: 43 Year
  Sex: Male

DRUGS (5)
  1. ROZEREM [Suspect]
     Indication: SLEEP DISORDER
     Dosage: 8 MG, QHS, PER ORAL; 16 MG, QHS, PER ORAL
     Route: 048
     Dates: start: 20080301, end: 20080301
  2. ROZEREM [Suspect]
     Indication: SLEEP DISORDER
     Dosage: 8 MG, QHS, PER ORAL; 16 MG, QHS, PER ORAL
     Route: 048
     Dates: start: 20080301
  3. EFFEXOR VR (VENLAFAXINE HYDROCHLORIDE) [Concomitant]
  4. LORAZEPAM [Concomitant]
  5. DEXEDRINE (DEXAMFETAMINE) [Concomitant]

REACTIONS (3)
  - DRUG INEFFECTIVE [None]
  - INCORRECT DOSE ADMINISTERED [None]
  - SELF-MEDICATION [None]
